FAERS Safety Report 14173520 (Version 1)
Quarter: 2017Q4

REPORT INFORMATION
  Report Type: Spontaneous
  Country: US (occurrence: US)
  Receive Date: 20171109
  Receipt Date: 20171109
  Transmission Date: 20180321
  Serious: No
  Sender: FDA-Public Use
  Company Number: US-PFIZER INC-2017479933

PATIENT
  Sex: Male

DRUGS (1)
  1. LATANOPROST. [Suspect]
     Active Substance: LATANOPROST
     Dosage: ONE DROP IN EACH EYE
     Route: 047

REACTIONS (6)
  - Pain in extremity [Unknown]
  - Fatigue [Unknown]
  - Poor quality drug administered [Unknown]
  - Malaise [Unknown]
  - Lethargy [Unknown]
  - Product storage error [Unknown]
